FAERS Safety Report 19147036 (Version 1)
Quarter: 2021Q2

REPORT INFORMATION
  Report Type: Spontaneous
  Country: GB (occurrence: GB)
  Receive Date: 20210416
  Receipt Date: 20210416
  Transmission Date: 20210717
  Serious: Yes (Hospitalization, Other)
  Sender: FDA-Public Use
  Company Number: GB-FRESENIUS KABI-FK202103828

PATIENT
  Age: 40 Year
  Sex: Male

DRUGS (2)
  1. OXALIPLATIN (MANUFACTURER UNKNOWN) [Suspect]
     Active Substance: OXALIPLATIN
     Indication: ADENOCARCINOMA OF COLON
     Route: 065
  2. CAPECITABINE. [Suspect]
     Active Substance: CAPECITABINE
     Indication: ADENOCARCINOMA OF COLON
     Dosage: CUMULATIVE ORAL DOSE OF CAPECITABINE (20 G)
     Route: 048

REACTIONS (4)
  - Toxic leukoencephalopathy [Recovering/Resolving]
  - Arteriospasm coronary [Unknown]
  - Hypotension [Unknown]
  - Pulmonary embolism [Unknown]
